FAERS Safety Report 22347671 (Version 2)
Quarter: 2023Q2

REPORT INFORMATION
  Report Type: Spontaneous
  Country: CH (occurrence: CH)
  Receive Date: 20230522
  Receipt Date: 20230615
  Transmission Date: 20230721
  Serious: Yes (Hospitalization, Other)
  Sender: FDA-Public Use
  Company Number: CH-ABBVIE-4743845

PATIENT
  Sex: Female
  Weight: 81 kg

DRUGS (11)
  1. UPADACITINIB [Suspect]
     Active Substance: UPADACITINIB
     Indication: Crohn^s disease
     Dosage: LAST ADMIN DATE : 2023
     Route: 048
     Dates: start: 20230222
  2. UPADACITINIB [Suspect]
     Active Substance: UPADACITINIB
     Indication: Crohn^s disease
     Dosage: FREQUENCY 1-0-1
     Route: 048
     Dates: start: 20230114, end: 20230125
  3. UPADACITINIB [Suspect]
     Active Substance: UPADACITINIB
     Indication: Crohn^s disease
     Dosage: FREQUENCY 2-0-1
     Route: 048
     Dates: start: 20221119, end: 20230113
  4. UPADACITINIB [Suspect]
     Active Substance: UPADACITINIB
     Indication: Crohn^s disease
     Dosage: 30 MILLIGRAM
     Route: 048
     Dates: start: 20221011, end: 20221118
  5. Tenofoviralafenamid (Vemlidy) [Concomitant]
     Indication: Product used for unknown indication
     Dates: start: 20230125
  6. ROSUVASTATIN [Concomitant]
     Active Substance: ROSUVASTATIN
     Indication: Product used for unknown indication
  7. Entecavir-Monohydrate [Concomitant]
     Indication: Product used for unknown indication
     Route: 048
  8. Entecavir-Monohydrate (Baraclude) [Concomitant]
     Indication: Product used for unknown indication
     Dosage: IN THE MORNING BETWEEN 6 AM AND 12 AM
     Route: 048
  9. ESOMEPRAZOLE [Concomitant]
     Active Substance: ESOMEPRAZOLE
     Indication: Product used for unknown indication
     Dosage: IN THE MORNING BETWEEN 6 AM AND 12 AM
     Route: 048
  10. Iomeprolum (Iomeron) [Concomitant]
     Indication: Product used for unknown indication
     Route: 042
  11. Domperidon (Domperidon lingual) [Concomitant]
     Indication: Product used for unknown indication
     Dosage: BEFORE MEALS, MAX. 3X/D (IN RESERVE)
     Route: 048

REACTIONS (13)
  - Transaminases increased [Recovered/Resolved]
  - Haemangioma of bone [Unknown]
  - Faeces discoloured [Unknown]
  - Hepatitis B reactivation [Recovered/Resolved]
  - Weight decreased [Unknown]
  - Serum ferritin increased [Recovered/Resolved]
  - Cell death [Not Recovered/Not Resolved]
  - Off label use [Unknown]
  - Gastrointestinal disorder [Unknown]
  - Hyperplastic cholecystopathy [Unknown]
  - Gastrointestinal disorder [Recovered/Resolved]
  - Abdominal discomfort [Unknown]
  - Asthenia [Unknown]

NARRATIVE: CASE EVENT DATE: 20220101
